FAERS Safety Report 22145608 (Version 1)
Quarter: 2023Q1

REPORT INFORMATION
  Report Type: Spontaneous
  Country: BR (occurrence: BR)
  Receive Date: 20230328
  Receipt Date: 20230328
  Transmission Date: 20230418
  Serious: Yes (Other)
  Sender: FDA-Public Use
  Company Number: BR-BRISTOL-MYERS SQUIBB COMPANY-2023-042397

PATIENT
  Age: 73 Year
  Sex: Male

DRUGS (2)
  1. REVLIMID [Suspect]
     Active Substance: LENALIDOMIDE
     Indication: Plasma cell myeloma
     Dosage: DOSE : 10MG, 15MG;     FREQ : UNAVAILABLE
  2. REVLIMID [Suspect]
     Active Substance: LENALIDOMIDE
     Dates: start: 202303

REACTIONS (2)
  - Immunodeficiency [Unknown]
  - Renal impairment [Unknown]

NARRATIVE: CASE EVENT DATE: 20230301
